FAERS Safety Report 23676888 (Version 1)
Quarter: 2024Q1

REPORT INFORMATION
  Report Type: Spontaneous
  Country: US (occurrence: US)
  Receive Date: 20240327
  Receipt Date: 20240327
  Transmission Date: 20240410
  Serious: Yes (Other)
  Sender: FDA-Public Use
  Company Number: US-MYLANLABS-2024M1027942

PATIENT
  Age: 67 Year
  Sex: Male

DRUGS (10)
  1. TACROLIMUS [Suspect]
     Active Substance: TACROLIMUS
     Indication: Pruritus
     Dosage: UNK
     Route: 061
  2. ROFLUMILAST [Suspect]
     Active Substance: ROFLUMILAST
     Indication: Pruritus
     Dosage: UNK
     Route: 061
  3. METHOTREXATE [Suspect]
     Active Substance: METHOTREXATE
     Indication: Pruritus
     Dosage: UNK
     Route: 048
  4. GABAPENTIN [Suspect]
     Active Substance: GABAPENTIN
     Indication: Pruritus
     Dosage: UNK
     Route: 065
  5. NALTREXONE [Suspect]
     Active Substance: NALTREXONE
     Indication: Pruritus
     Dosage: UNK
     Route: 065
  6. TAPINAROF [Suspect]
     Active Substance: TAPINAROF
     Indication: Pruritus
     Dosage: UNK
     Route: 065
  7. CAPSAICIN [Suspect]
     Active Substance: CAPSAICIN
     Indication: Pruritus
     Dosage: UNK
     Route: 065
  8. DUPILUMAB [Suspect]
     Active Substance: DUPILUMAB
     Indication: Pruritus
     Dosage: UNK
     Route: 065
  9. RUXOLITINIB [Suspect]
     Active Substance: RUXOLITINIB
     Indication: Pruritus
     Dosage: UNK
     Route: 061
  10. BUPIVACAINE [Suspect]
     Active Substance: BUPIVACAINE
     Indication: Pruritus
     Dosage: UNK, EVERY 4 WEEKS, A TOTAL OF 6 ML (3 ML PER SIDE) AT 2 INJECTION SITE
     Route: 065

REACTIONS (2)
  - Drug ineffective for unapproved indication [Unknown]
  - Off label use [Unknown]
